FAERS Safety Report 9266933 (Version 1)
Quarter: 2013Q2

REPORT INFORMATION
  Report Type: Spontaneous
  Country: FR (occurrence: FR)
  Receive Date: 20130502
  Receipt Date: 20130502
  Transmission Date: 20140414
  Serious: Yes (Death)
  Sender: FDA-Public Use
  Company Number: FR-009507513-1304FRA016955

PATIENT
  Age: 84 Year
  Sex: Female

DRUGS (6)
  1. INVANZ [Suspect]
     Dosage: 1 G, QD
     Route: 042
     Dates: start: 20130330, end: 20130405
  2. LOVENOX [Concomitant]
  3. BRICANYL [Concomitant]
  4. LASILIX [Concomitant]
  5. IPRATROPIUM BROMIDE [Concomitant]
  6. LANTUS [Concomitant]

REACTIONS (3)
  - Diarrhoea [Fatal]
  - Clostridium test positive [Fatal]
  - Urinary tract infection [Fatal]
